FAERS Safety Report 4529410-9 (Version None)
Quarter: 2004Q4

REPORT INFORMATION
  Report Type: 
  Country: None (occurrence: None)
  Receive Date: 20041215
  Receipt Date: 20041215
  Transmission Date: 20050328
  Serious: Yes (Other)
  Sender: FDA-Public Use
  Company Number: None

PATIENT

DRUGS (1)
  1. OXYCONTIN [Suspect]
     Indication: PAIN
     Dosage: SEE IMAGE
     Route: 048

REACTIONS (1)
  - THERAPY NON-RESPONDER [None]
